FAERS Safety Report 5265208-4 (Version None)
Quarter: 2007Q1

REPORT INFORMATION
  Report Type: 
  Country: None (occurrence: None)
  Receive Date: 20061213
  Receipt Date: 20040526
  Transmission Date: 20070707
  Serious: Yes (Other)
  Sender: FDA-Public Use
  Company Number: 2004UW11059

PATIENT
  Sex: Male

DRUGS (1)
  1. IRESSA [Suspect]
     Dosage: 250 MG HS PO
     Route: 048
     Dates: start: 20040501

REACTIONS (2)
  - LACRIMATION INCREASED [None]
  - VISION BLURRED [None]
